FAERS Safety Report 5757827-3 (Version None)
Quarter: 2008Q2

REPORT INFORMATION
  Report Type: 
  Country: None (occurrence: None)
  Receive Date: 20080603
  Receipt Date: 20080527
  Transmission Date: 20081010
  Serious: Yes (Other)
  Sender: FDA-Public Use
  Company Number: PHBS2008NL04656

PATIENT
  Sex: Male

DRUGS (1)
  1. CYCLOSPORINE [Suspect]
     Indication: HEART TRANSPLANT

REACTIONS (6)
  - INTESTINAL OBSTRUCTION [None]
  - LOCALISED INTRAABDOMINAL FLUID COLLECTION [None]
  - PERITONEAL DIALYSIS [None]
  - PERITONEAL FIBROSIS [None]
  - RENAL FAILURE [None]
  - SCLEROSING ENCAPSULATING PERITONITIS [None]
